FAERS Safety Report 23984846 (Version 4)
Quarter: 2025Q3

REPORT INFORMATION
  Report Type: Report from Study
  Country: CA (occurrence: CA)
  Receive Date: 20240618
  Receipt Date: 20250921
  Transmission Date: 20251021
  Serious: Yes (Hospitalization, Other)
  Sender: CHIESI
  Company Number: CA-CHIESI-2024CHF02892

PATIENT
  Age: 58 Year
  Sex: Female
  Weight: 54.5 kg

DRUGS (9)
  1. DEFERIPRONE [Suspect]
     Active Substance: DEFERIPRONE
     Indication: Neurodegeneration with brain iron accumulation disorder
     Dosage: 2000 MILLIGRAM, BID
     Route: 048
     Dates: start: 20240520
  2. DEFERIPRONE [Suspect]
     Active Substance: DEFERIPRONE
     Indication: Off label use
     Dosage: 2000 MILLIGRAM, QD
     Route: 065
  3. VITAMINS [Concomitant]
     Active Substance: VITAMINS
     Indication: Product used for unknown indication
     Dosage: 1 DOSAGE FORM, QD
  4. VITAMIN D [Concomitant]
     Active Substance: VITAMIN D NOS
     Indication: Product used for unknown indication
     Dosage: UNK, HS
     Route: 048
  5. ASPIRIN [Concomitant]
     Active Substance: ASPIRIN
     Indication: Product used for unknown indication
     Dosage: 81 MILLIGRAM, QD
  6. DEFERIPRONE [Concomitant]
     Active Substance: DEFERIPRONE
     Indication: Product used for unknown indication
  7. DEFERIPRONE [Concomitant]
     Active Substance: DEFERIPRONE
  8. GLICLAZIDE [Concomitant]
     Active Substance: GLICLAZIDE
     Indication: Product used for unknown indication
     Dosage: 30 MILLIGRAM, Q.AM
  9. Saxagliptin and metformin hydrochloride extended release [Concomitant]
     Indication: Product used for unknown indication
     Route: 048

REACTIONS (19)
  - Delirium [Recovered/Resolved]
  - Extra dose administered [Recovered/Resolved]
  - Rhinovirus infection [Recovered/Resolved]
  - Hallucination [Recovered/Resolved]
  - Head injury [Recovered/Resolved]
  - Urinary tract infection [Recovered/Resolved]
  - Loss of consciousness [Recovered/Resolved]
  - Product dose omission issue [Recovered/Resolved]
  - Hyperglycaemia [Recovered/Resolved]
  - Blood glucose decreased [Recovered/Resolved]
  - Fall [Recovered/Resolved]
  - Constipation [Unknown]
  - Serum ferritin increased [Unknown]
  - Hepatic enzyme increased [Recovering/Resolving]
  - General physical condition abnormal [Unknown]
  - Fall [Unknown]
  - Weight decreased [Unknown]
  - Off label use [Not Recovered/Not Resolved]
  - Off label use [Not Recovered/Not Resolved]

NARRATIVE: CASE EVENT DATE: 20240520
